FAERS Safety Report 5044622-6 (Version None)
Quarter: 2006Q3

REPORT INFORMATION
  Report Type: 
  Country: None (occurrence: None)
  Receive Date: 20060706
  Receipt Date: 20060130
  Transmission Date: 20061208
  Serious: Yes (Hospitalization)
  Sender: FDA-Public Use
  Company Number: US-BRISTOL-MYERS SQUIBB COMPANY-13264577

PATIENT
  Age: 52 Year
  Sex: Female

DRUGS (14)
  1. ORENCIA [Suspect]
     Indication: RHEUMATOID ARTHRITIS
     Route: 042
     Dates: start: 20060109, end: 20060124
  2. PREDNISONE TAB [Concomitant]
     Dates: start: 20051129
  3. METHOTREXATE [Concomitant]
     Dates: start: 20051129
  4. CELEBREX [Concomitant]
     Dates: start: 20050601
  5. ACTOS [Concomitant]
     Dates: start: 20050501
  6. GLUCOPHAGE [Concomitant]
     Dates: start: 20050501
  7. FOLIC ACID [Concomitant]
     Dates: start: 19950101
  8. ACETAMINOPHEN AND HYDROCODONE BITARTRATE [Concomitant]
     Dates: start: 20040101
  9. AMBIEN [Concomitant]
     Dates: start: 20000101
  10. EFFEXOR XR [Concomitant]
     Dates: start: 20040101
  11. SOTALOL HCL [Concomitant]
     Dates: start: 20051220
  12. MICARDIS [Concomitant]
     Dates: start: 20051230
  13. LASIX [Concomitant]
     Dates: start: 20051220
  14. CRESTOR [Concomitant]
     Dates: start: 20051201

REACTIONS (31)
  - ATELECTASIS [None]
  - BLOOD ALBUMIN DECREASED [None]
  - BLOOD CALCIUM DECREASED [None]
  - BLOOD PRESSURE DECREASED [None]
  - CARDIOMEGALY [None]
  - COLITIS [None]
  - COLITIS EROSIVE [None]
  - DYSARTHRIA [None]
  - ELECTROCARDIOGRAM QT PROLONGED [None]
  - ELECTROCARDIOGRAM ST SEGMENT ABNORMAL [None]
  - FEELING COLD [None]
  - GASTRITIS EROSIVE [None]
  - HAEMATEMESIS [None]
  - HEPATIC LESION [None]
  - HYPOKALAEMIA [None]
  - LUNG INFILTRATION [None]
  - MYOPATHY [None]
  - NAUSEA [None]
  - OESOPHAGITIS [None]
  - PLEURAL EFFUSION [None]
  - PROCTITIS [None]
  - PROTEIN TOTAL DECREASED [None]
  - PULMONARY CONGESTION [None]
  - RED BLOOD CELL COUNT DECREASED [None]
  - RENAL FAILURE ACUTE [None]
  - RESPIRATORY FAILURE [None]
  - THERAPY NON-RESPONDER [None]
  - UTERINE ENLARGEMENT [None]
  - UTERINE LEIOMYOMA [None]
  - VOMITING [None]
  - WHITE BLOOD CELL COUNT INCREASED [None]
